FAERS Safety Report 4434121-4 (Version None)
Quarter: 2004Q3

REPORT INFORMATION
  Report Type: 
  Country: None (occurrence: None)
  Receive Date: 20040825
  Receipt Date: 20040812
  Transmission Date: 20050211
  Serious: Yes (Hospitalization)
  Sender: FDA-Public Use
  Company Number: 2004228268DE

PATIENT
  Age: 49 Year
  Sex: Female
  Weight: 50 kg

DRUGS (1)
  1. FARMORUBICIN (EPIRUBICIN HYDROCHLORIDE) SOLUTION, STERILE [Suspect]
     Indication: BREAST CANCER
     Dosage: 240 MG, CYCLIC, IV
     Route: 042
     Dates: start: 20040730, end: 20040730

REACTIONS (2)
  - STRESS SYMPTOMS [None]
  - WEIGHT DECREASED [None]
